FAERS Safety Report 17986228 (Version 1)
Quarter: 2020Q3

REPORT INFORMATION
  Report Type: Spontaneous
  Country: CA (occurrence: CA)
  Receive Date: 20200706
  Receipt Date: 20200706
  Transmission Date: 20201103
  Serious: Yes (Other)
  Sender: FDA-Public Use
  Company Number: CA-ASCEND THERAPEUTICS US, LLC-2087068

PATIENT
  Age: 36 Year
  Sex: Female
  Weight: 68 kg

DRUGS (3)
  1. ESTROGEL [Suspect]
     Active Substance: ESTRADIOL
  2. ESTROGEL [Suspect]
     Active Substance: ESTRADIOL
     Indication: HORMONE REPLACEMENT THERAPY
     Route: 061
     Dates: start: 20190124
  3. ESTRADIOL. [Suspect]
     Active Substance: ESTRADIOL
     Route: 061
     Dates: start: 20190124

REACTIONS (3)
  - Drug ineffective [Unknown]
  - Mood swings [Recovered/Resolved]
  - Hot flush [Recovered/Resolved]
